FAERS Safety Report 10246000 (Version 3)
Quarter: 2014Q2

REPORT INFORMATION
  Report Type: Report from Study
  Country: CA (occurrence: US)
  Receive Date: 20140619
  Receipt Date: 20140623
  Transmission Date: 20141212
  Serious: Yes (Other)
  Sender: FDA-Public Use
  Company Number: CA-ROCHE-1173663

PATIENT
  Age: 71 Year
  Sex: Male
  Weight: 86 kg

DRUGS (12)
  1. OMALIZUMAB [Suspect]
     Indication: ASTHMA
     Route: 058
     Dates: start: 20080115
  2. OMALIZUMAB [Suspect]
     Route: 058
     Dates: start: 20090407
  3. OMALIZUMAB [Suspect]
     Route: 058
     Dates: start: 20090904
  4. OMALIZUMAB [Suspect]
     Route: 058
     Dates: start: 20091201
  5. OMALIZUMAB [Suspect]
     Route: 058
     Dates: start: 20091215
  6. OMALIZUMAB [Suspect]
     Route: 058
     Dates: start: 20100210
  7. OMALIZUMAB [Suspect]
     Route: 058
     Dates: start: 20130111
  8. ADVIL [Suspect]
     Indication: PAIN
     Route: 065
  9. VENTOLIN [Concomitant]
  10. ALVESCO [Concomitant]
     Dosage: 2 PUFFS
     Route: 065
  11. SPIRIVA [Concomitant]
  12. ADVAIR [Concomitant]

REACTIONS (32)
  - Lung infection [Unknown]
  - Diabetes mellitus [Unknown]
  - Oropharyngeal pain [Unknown]
  - Productive cough [Unknown]
  - Wheezing [Unknown]
  - Dyspnoea exertional [Unknown]
  - Aural polyp [Unknown]
  - Nasal polyps [Unknown]
  - Blood glucose increased [Unknown]
  - Overweight [Unknown]
  - Cough [Unknown]
  - Hypersensitivity [Unknown]
  - Rhinorrhoea [Unknown]
  - Dyspnoea [Recovering/Resolving]
  - Sinus congestion [Unknown]
  - Hypotension [Unknown]
  - Rash macular [Recovered/Resolved]
  - Nasal congestion [Unknown]
  - Discomfort [Unknown]
  - Ear pruritus [Unknown]
  - Dizziness [Unknown]
  - Weight increased [Unknown]
  - Cerumen impaction [Unknown]
  - Malaise [Unknown]
  - Fatigue [Unknown]
  - Somnolence [Unknown]
  - Rhinorrhoea [Unknown]
  - Eye discharge [Unknown]
  - Tooth infection [Unknown]
  - Pain [Unknown]
  - Back pain [Unknown]
  - Increased upper airway secretion [Unknown]
